FAERS Safety Report 21459254 (Version 2)
Quarter: 2023Q2

REPORT INFORMATION
  Report Type: Spontaneous
  Country: FR (occurrence: FR)
  Receive Date: 20221014
  Receipt Date: 20230630
  Transmission Date: 20230721
  Serious: Yes (Hospitalization)
  Sender: FDA-Public Use
  Company Number: FR-GW PHARMA-2022-FR-032047

PATIENT
  Age: 12 Year
  Sex: Male
  Weight: 22 kg

DRUGS (4)
  1. CANNABIDIOL [Suspect]
     Active Substance: CANNABIDIOL
     Indication: Epilepsy
     Dosage: 1.7 MILLILITER, BID
     Route: 048
     Dates: start: 20190906
  2. INOVELON [Concomitant]
     Active Substance: RUFINAMIDE
     Indication: Epilepsy
     Dosage: 640 MILLIGRAM
     Route: 048
     Dates: start: 20140620
  3. LAMICTAL [Concomitant]
     Active Substance: LAMOTRIGINE
     Indication: Lennox-Gastaut syndrome
     Dosage: 80 MILLIGRAM
     Route: 048
     Dates: start: 20151002
  4. CLOBAZAM [Concomitant]
     Active Substance: CLOBAZAM
     Indication: Lennox-Gastaut syndrome
     Dosage: 10 MILLIGRAM
     Route: 048
     Dates: start: 20131120

REACTIONS (2)
  - Anaemia [Recovered/Resolved]
  - Pallor [Recovered/Resolved]

NARRATIVE: CASE EVENT DATE: 20220830
